FAERS Safety Report 15767281 (Version 1)
Quarter: 2018Q4

REPORT INFORMATION
  Report Type: Report from Study
  Country: FR (occurrence: FR)
  Receive Date: 20181227
  Receipt Date: 20181227
  Transmission Date: 20190205
  Serious: Yes (Death, Other)
  Sender: FDA-Public Use
  Company Number: FR-GILEAD-2018-0381608

PATIENT
  Age: 0 Year

DRUGS (1)
  1. TENOFOVIR DISOPROXIL FUMARATE. [Suspect]
     Active Substance: TENOFOVIR DISOPROXIL FUMARATE
     Indication: HEPATITIS B
     Dosage: UNK
     Route: 064
     Dates: start: 201110, end: 20111222

REACTIONS (2)
  - Foetal exposure during pregnancy [Recovered/Resolved]
  - Mitochondrial cytopathy [Fatal]

NARRATIVE: CASE EVENT DATE: 201110
